FAERS Safety Report 8839781 (Version 1)
Quarter: 2012Q4

REPORT INFORMATION
  Report Type: 
  Country: US (occurrence: US)
  Receive Date: 20121015
  Receipt Date: 20121015
  Transmission Date: 20130627
  Serious: No
  Sender: FDA-Public Use
  Company Number: US-BRISTOL-MYERS SQUIBB COMPANY-16121618

PATIENT
  Age: 12 Year
  Sex: Female

DRUGS (2)
  1. KENALOG-40 INJ [Suspect]
     Indication: ALOPECIA AREATA
     Dosage: and also taken on 30Aug2011
     Dates: start: 20110809
  2. KENACORT RETARD 40 INJ [Suspect]
     Indication: ALOPECIA AREATA
     Dosage: 1df=40mg/1ml every 3 to 4wks

REACTIONS (1)
  - Onychomadesis [Unknown]
